FAERS Safety Report 5006434-9 (Version None)
Quarter: 2006Q2

REPORT INFORMATION
  Report Type: 
  Country: None (occurrence: None)
  Receive Date: 20060516
  Receipt Date: 20060424
  Transmission Date: 20061013
  Serious: Yes (Other)
  Sender: FDA-Public Use
  Company Number: US200605002196

PATIENT
  Age: 73 Year
  Sex: Male

DRUGS (2)
  1. HUMALOG MIX 75/25 [Suspect]
     Dosage: AS NEEDED
     Dates: start: 20010101
  2. HUMALOG MIX 25L / 75NPL PEN (HUMALOG MIX 25L / 75NPL PEN) PEN, DISPOSA [Concomitant]

REACTIONS (5)
  - DIABETIC COMPLICATION [None]
  - EYE OPERATION [None]
  - PANCREATITIS [None]
  - PHARMACEUTICAL PRODUCT COMPLAINT [None]
  - VISUAL DISTURBANCE [None]
